FAERS Safety Report 5530244-7 (Version None)
Quarter: 2007Q4

REPORT INFORMATION
  Report Type: 
  Country: None (occurrence: None)
  Receive Date: 20071127
  Receipt Date: 20071127
  Transmission Date: 20080405
  Serious: No
  Sender: FDA-Public Use
  Company Number: None

PATIENT
  Age: 56 Year
  Sex: Male
  Weight: 77.5651 kg

DRUGS (1)
  1. CHANTIX [Suspect]
     Dosage: 2 DAILY OTIC

REACTIONS (2)
  - ABNORMAL SLEEP-RELATED EVENT [None]
  - AGGRESSION [None]
